FAERS Safety Report 15159579 (Version 1)
Quarter: 2018Q3

REPORT INFORMATION
  Report Type: Spontaneous
  Country: ES (occurrence: ES)
  Receive Date: 20180718
  Receipt Date: 20180718
  Transmission Date: 20181010
  Serious: Yes (Hospitalization)
  Sender: FDA-Public Use
  Company Number: ES-TEVA-2018-ES-927734

PATIENT
  Age: 74 Year
  Sex: Male

DRUGS (5)
  1. BRILIQUE 60 MG COMPRIMIDOS RECUBIERTOS CON PELICULA, 56 COMPRIMIDOS; 1 [Suspect]
     Active Substance: TICAGRELOR
     Indication: ACUTE MYOCARDIAL INFARCTION
     Dosage: 180 MILLIGRAM DAILY;
     Route: 048
     Dates: start: 20180312
  2. ADIRO 100 MG COMPRIMIDOS GASTRORRESISTENTES EFG , 30 COMPRIMIDOS [Suspect]
     Active Substance: ASPIRIN
     Indication: ACUTE MYOCARDIAL INFARCTION
     Dosage: 100 MILLIGRAM DAILY;
     Route: 048
     Dates: start: 20180312
  3. SYRON (FERRIMANNITOL OVALBUMIN) [Suspect]
     Active Substance: FERRIC OXIDE RED
     Indication: ANAEMIA
     Dosage: 80 MILLIGRAM DAILY;
     Route: 048
     Dates: start: 20180427
  4. ATORVASTATINA 40 MG 28 COMPRIMIDOS [Suspect]
     Active Substance: ATORVASTATIN
     Indication: ACUTE MYOCARDIAL INFARCTION
     Dosage: 40 MICROGRAM DAILY;
     Route: 048
     Dates: start: 20180312, end: 20180615
  5. ZONISAMIDA 50 MG C?PSULA [Suspect]
     Active Substance: ZONISAMIDE
     Indication: TREMOR
     Dosage: 50 MILLIGRAM DAILY;
     Route: 048
     Dates: start: 20160316

REACTIONS (1)
  - Hepatitis toxic [Recovering/Resolving]

NARRATIVE: CASE EVENT DATE: 20180617
